FAERS Safety Report 9379266 (Version 1)
Quarter: 2013Q3

REPORT INFORMATION
  Report Type: Spontaneous
  Country: ES (occurrence: ES)
  Receive Date: 20130702
  Receipt Date: 20130702
  Transmission Date: 20140515
  Serious: Yes (Death, Hospitalization, Other)
  Sender: FDA-Public Use
  Company Number: ES-JNJFOC-20130613399

PATIENT
  Age: 64 Year
  Sex: Female

DRUGS (5)
  1. DOXORUBICIN [Suspect]
     Indication: BREAST CANCER
     Route: 042
  2. CYCLOPHOSPHAMIDE [Suspect]
     Indication: BREAST CANCER
     Route: 065
  3. TAXOL [Suspect]
     Indication: BREAST CANCER
     Route: 065
  4. LETROZOL [Suspect]
     Indication: BREAST CANCER
     Route: 065
  5. VITAMIN D [Suspect]
     Indication: PRODUCT USED FOR UNKNOWN INDICATION
     Route: 065

REACTIONS (12)
  - Waldenstrom^s macroglobulinaemia [Fatal]
  - Tumour lysis syndrome [Fatal]
  - Mantle cell lymphoma [Fatal]
  - Malignant neoplasm progression [Fatal]
  - Anaemia [Recovered/Resolved]
  - Abdominal pain [Unknown]
  - Change of bowel habit [Unknown]
  - Thrombocytopenia [Recovered/Resolved]
  - Anaemia [Unknown]
  - Hyperhidrosis [Unknown]
  - Fatigue [Unknown]
  - Decreased appetite [Unknown]
